FAERS Safety Report 23024311 (Version 1)
Quarter: 2023Q4

REPORT INFORMATION
  Report Type: Spontaneous
  Country: IT (occurrence: IT)
  Receive Date: 20231004
  Receipt Date: 20231004
  Transmission Date: 20240110
  Serious: Yes (Other)
  Sender: FDA-Public Use
  Company Number: IT-MINISAL02-945089

PATIENT
  Age: 47 Year
  Sex: Male
  Weight: 84 kg

DRUGS (2)
  1. FUROSEMIDE [Suspect]
     Active Substance: FUROSEMIDE
     Indication: Cardiac failure
     Dosage: 125 MILLIGRAM (FUROSEMIDE 125 MG IV FROM 04 TO 07/09, THEN SWITCHED TO 20 MG TO DATE (18/09))
     Route: 042
     Dates: start: 20230904, end: 20230907
  2. FUROSEMIDE [Suspect]
     Active Substance: FUROSEMIDE
     Dosage: 20 MILLIGRAM (FUROSEMIDE 125 MG EV DAL 04 AL 07/09, POI PASSATO A 20 MG FINO AD OGGI (18/09))
     Route: 042
     Dates: start: 20230908

REACTIONS (1)
  - Hypokalaemia [Recovered/Resolved]

NARRATIVE: CASE EVENT DATE: 20230904
